FAERS Safety Report 5872267-4 (Version None)
Quarter: 2008Q3

REPORT INFORMATION
  Report Type: 
  Country: None (occurrence: None)
  Receive Date: 20080905
  Receipt Date: 20080902
  Transmission Date: 20090109
  Serious: Yes (Other)
  Sender: FDA-Public Use
  Company Number: IT-MERCK-0809ITA00006

PATIENT
  Age: 54 Year
  Sex: Female

DRUGS (5)
  1. SINGULAIR [Suspect]
     Indication: ASTHMA
     Route: 048
     Dates: start: 20070501, end: 20080124
  2. AMLODIPINE BESYLATE [Concomitant]
     Route: 065
  3. PRAVASTATIN SODIUM [Concomitant]
     Route: 065
  4. TIOTROPIUM BROMIDE [Concomitant]
     Route: 065
  5. BUDESONIDE AND FORMOTEROL FUMARATE [Concomitant]
     Route: 065

REACTIONS (1)
  - SUICIDAL IDEATION [None]
